FAERS Safety Report 11270136 (Version 2)
Quarter: 2016Q3

REPORT INFORMATION
  Report Type: Spontaneous
  Country: SE (occurrence: SE)
  Receive Date: 20150714
  Receipt Date: 20160907
  Transmission Date: 20161109
  Serious: Yes (Other)
  Sender: FDA-Public Use
  Company Number: SE-PFIZER INC-2015232190

PATIENT
  Age: 25 Year
  Sex: Female

DRUGS (1)
  1. ZOLOFT [Suspect]
     Active Substance: SERTRALINE HYDROCHLORIDE
     Indication: PERINATAL DEPRESSION
     Dosage: 100 MG, DAILY

REACTIONS (2)
  - Anxiety [Not Recovered/Not Resolved]
  - Depression suicidal [Recovered/Resolved]
